FAERS Safety Report 5643581-2 (Version None)
Quarter: 2008Q1

REPORT INFORMATION
  Report Type: 
  Country: None (occurrence: None)
  Receive Date: 20080228
  Receipt Date: 20080220
  Transmission Date: 20080703
  Serious: Yes (Death, Life-Threatening, Hospitalization, Other)
  Sender: FDA-Public Use
  Company Number: JP-ABBOTT-07P-087-0427627-00

PATIENT
  Sex: Male

DRUGS (8)
  1. SEVOFLURANE [Suspect]
     Indication: MAINTENANCE OF ANAESTHESIA
     Route: 055
     Dates: start: 20070917, end: 20070917
  2. THIAMYLAL SODIUM [Concomitant]
     Indication: INDUCTION OF ANAESTHESIA
     Route: 042
     Dates: start: 20070917, end: 20070917
  3. VECURONIUM BROMIDE [Concomitant]
     Indication: ANAESTHESIA
     Route: 042
     Dates: start: 20070917, end: 20070917
  4. VECURONIUM BROMIDE [Concomitant]
     Indication: HYPOTONIA
  5. VECURONIUM BROMIDE [Concomitant]
     Indication: ENDOTRACHEAL INTUBATION
  6. ATROPINE SULFATE HYDRATE [Concomitant]
     Indication: ANAESTHETIC PREMEDICATION
     Route: 042
     Dates: start: 20070917, end: 20070917
  7. HYDROXYZINE HYDROCHLORIDE [Concomitant]
     Indication: ANAESTHETIC PREMEDICATION
     Route: 042
     Dates: start: 20070917, end: 20070917
  8. OXYGEN [Concomitant]
     Indication: MAINTENANCE OF ANAESTHESIA
     Dates: start: 20070917, end: 20070917

REACTIONS (9)
  - ANAEMIA [None]
  - BRADYCARDIA [None]
  - HYPERCAPNIA [None]
  - HYPERTHERMIA MALIGNANT [None]
  - PERITONITIS [None]
  - SHOCK [None]
  - SMALL INTESTINAL HAEMORRHAGE [None]
  - SMALL INTESTINAL PERFORATION [None]
  - WOUND HAEMORRHAGE [None]
